FAERS Safety Report 20012969 (Version 3)
Quarter: 2021Q4

REPORT INFORMATION
  Report Type: Spontaneous
  Country: US (occurrence: US)
  Receive Date: 20211029
  Receipt Date: 20211112
  Transmission Date: 20220303
  Serious: Yes (Hospitalization)
  Sender: FDA-Public Use
  Company Number: US-CELGENE-USA-20210904181

PATIENT
  Age: 56 Year
  Sex: Male

DRUGS (4)
  1. REVLIMID [Suspect]
     Active Substance: LENALIDOMIDE
     Indication: Plasma cell myeloma
     Dosage: 15 MILLIGRAM
     Route: 048
     Dates: start: 202007
  2. ACYCLOVIR [Concomitant]
     Active Substance: ACYCLOVIR
     Indication: Infection prophylaxis
     Route: 065
  3. DIFICID [Concomitant]
     Active Substance: FIDAXOMICIN
     Indication: Infection prophylaxis
     Route: 065
  4. FLAGYL [Concomitant]
     Active Substance: METRONIDAZOLE\METRONIDAZOLE HYDROCHLORIDE
     Indication: Infection prophylaxis
     Route: 065

REACTIONS (2)
  - Clostridium difficile colitis [Not Recovered/Not Resolved]
  - Gastroenteritis salmonella [Not Recovered/Not Resolved]

NARRATIVE: CASE EVENT DATE: 20210801
